FAERS Safety Report 6257426-3 (Version None)
Quarter: 2009Q3

REPORT INFORMATION
  Report Type: 
  Country: None (occurrence: None)
  Receive Date: 20090706
  Receipt Date: 20090630
  Transmission Date: 20100115
  Serious: Yes (Hospitalization)
  Sender: FDA-Public Use
  Company Number: US-MERCK-0907USA00047

PATIENT
  Age: 5 Year
  Sex: Female

DRUGS (2)
  1. SINGULAIR [Suspect]
     Indication: CHRONIC SINUSITIS
     Route: 048
  2. NASONEX [Concomitant]
     Route: 065

REACTIONS (1)
  - COMPLEMENT FACTOR C2 DECREASED [None]
